FAERS Safety Report 7948760-7 (Version None)
Quarter: 2011Q4

REPORT INFORMATION
  Report Type: 
  Country: None (occurrence: None)
  Receive Date: 20111130
  Receipt Date: 20111121
  Transmission Date: 20120403
  Serious: Yes (Other)
  Sender: FDA-Public Use
  Company Number: AU-JNJFOC-20111109310

PATIENT
  Sex: Female

DRUGS (2)
  1. REMICADE [Suspect]
     Indication: CROHN'S DISEASE
     Route: 042
     Dates: start: 20110714
  2. REMICADE [Suspect]
     Dosage: PATIENT'S FOURTH INFUSION
     Route: 042
     Dates: start: 20111115

REACTIONS (5)
  - FATIGUE [None]
  - HYPOTENSION [None]
  - HEADACHE [None]
  - SYNCOPE [None]
  - NAUSEA [None]
